FAERS Safety Report 11037428 (Version 1)
Quarter: 2015Q2

REPORT INFORMATION
  Report Type: Spontaneous
  Country: GB (occurrence: None)
  Receive Date: 20150414
  Receipt Date: 20150414
  Transmission Date: 20150821
  Serious: Yes (Other)
  Sender: FDA-Public Use
  Company Number: FK201501642

PATIENT
  Age: 58 Year
  Sex: Female
  Weight: 65.31 kg

DRUGS (2)
  1. VENLAFAXINE [Concomitant]
     Active Substance: VENLAFAXINE HYDROCHLORIDE
  2. ANASTROZOLE (MANUFACTURER UNKNOWN)  (ANASTROZOLE) (ANASTROZOLE) [Suspect]
     Active Substance: ANASTROZOLE
     Indication: BREAST CANCER
     Route: 048
     Dates: start: 20150220

REACTIONS (3)
  - Trigger finger [None]
  - Thirst [None]
  - Arthralgia [None]

NARRATIVE: CASE EVENT DATE: 20150310
